FAERS Safety Report 7349130-5 (Version None)
Quarter: 2011Q1

REPORT INFORMATION
  Report Type: 
  Country: None (occurrence: None)
  Receive Date: 20110314
  Receipt Date: 20110125
  Transmission Date: 20110831
  Serious: Yes (Death)
  Sender: FDA-Public Use
  Company Number: US-TYCO HEALTHCARE/MALLINCKRODT-T201100477

PATIENT
  Age: 10 Year
  Sex: Male

DRUGS (10)
  1. VALPROIC ACID [Suspect]
     Route: 048
  2. OMEPRAZOLE [Suspect]
     Route: 048
  3. ATOMOXETINE [Suspect]
     Route: 048
  4. LORATADINE [Suspect]
     Route: 048
  5. CLONAZEPAM [Suspect]
     Route: 048
  6. ALPRAZOLAM [Suspect]
     Route: 048
  7. METHYLIN [Suspect]
     Route: 048
  8. LORAZEPAM [Suspect]
     Route: 048
  9. QUETIAPINE [Suspect]
     Route: 048
  10. RISPERDONE [Suspect]
     Route: 048

REACTIONS (2)
  - CARDIO-RESPIRATORY ARREST [None]
  - CHILD ABUSE [None]
